FAERS Safety Report 5537405-1 (Version None)
Quarter: 2007Q4

REPORT INFORMATION
  Report Type: 
  Country: None (occurrence: None)
  Receive Date: 20071207
  Receipt Date: 20071129
  Transmission Date: 20080405
  Serious: Yes (Hospitalization)
  Sender: FDA-Public Use
  Company Number: B0497679A

PATIENT
  Age: 20 Year
  Sex: Female

DRUGS (1)
  1. LAMICTAL [Suspect]
     Indication: BIPOLAR DISORDER
     Route: 048
     Dates: start: 20071026

REACTIONS (3)
  - BLOOD BILIRUBIN INCREASED [None]
  - HEPATIC PAIN [None]
  - PROTEIN TOTAL ABNORMAL [None]
